FAERS Safety Report 6680778-7 (Version None)
Quarter: 2010Q2

REPORT INFORMATION
  Report Type: 
  Country: None (occurrence: None)
  Receive Date: 20100413
  Receipt Date: 20100413
  Transmission Date: 20101027
  Serious: No
  Sender: FDA-Public Use
  Company Number: None

PATIENT
  Age: 61 Year
  Sex: Male
  Weight: 159.8 kg

DRUGS (1)
  1. PACLITAXEL [Suspect]
     Indication: HEAD AND NECK CANCER
     Dosage: 235 MG ONCE IV
     Route: 042
     Dates: start: 20100402, end: 20100402

REACTIONS (9)
  - ABDOMINAL DISCOMFORT [None]
  - BRADYCARDIA [None]
  - ERYTHEMA [None]
  - HYPERHIDROSIS [None]
  - HYPERTENSION [None]
  - INFUSION RELATED REACTION [None]
  - LOSS OF CONSCIOUSNESS [None]
  - RESPIRATORY DEPRESSION [None]
  - RESTLESSNESS [None]
